FAERS Safety Report 7070104-6 (Version None)
Quarter: 2010Q4

REPORT INFORMATION
  Report Type: 
  Country: None (occurrence: None)
  Receive Date: 20101028
  Receipt Date: 20100901
  Transmission Date: 20110411
  Serious: No
  Sender: FDA-Public Use
  Company Number: US-WYE-H17301610

PATIENT
  Age: 35 Year
  Sex: Male
  Weight: 108.96 kg

DRUGS (1)
  1. ADVIL [Suspect]
     Indication: PAIN
     Dosage: 2 CAPLETS AS NEEDED
     Route: 048
     Dates: start: 20000101

REACTIONS (1)
  - DRUG INEFFECTIVE [None]
